FAERS Safety Report 8442215-1 (Version None)
Quarter: 2012Q2

REPORT INFORMATION
  Report Type: 
  Country: None (occurrence: None)
  Receive Date: 20120615
  Receipt Date: 20120224
  Transmission Date: 20120825
  Serious: No
  Sender: FDA-Public Use
  Company Number: US-NOVEN-12US004174

PATIENT
  Sex: Female

DRUGS (7)
  1. CLONIDINE [Concomitant]
     Indication: ATTENTION DEFICIT/HYPERACTIVITY DISORDER
     Dosage: 0.1 MG, QID
     Route: 048
  2. OXCARBAZEPINE [Concomitant]
     Dosage: 600 MG, EVENING
     Route: 048
  3. DAYTRANA [Suspect]
     Indication: ATTENTION DEFICIT/HYPERACTIVITY DISORDER
     Dosage: 30 MG, UNK
     Route: 062
     Dates: start: 20110101
  4. OXCARBAZEPINE [Concomitant]
     Indication: AGGRESSION
     Dosage: 300 MG, MORNING
     Route: 048
  5. OLANZAPINE [Concomitant]
     Dosage: 5 MG, EVENING
     Route: 048
  6. METHYLPHENIDATE [Concomitant]
     Indication: ATTENTION DEFICIT/HYPERACTIVITY DISORDER
     Dosage: 20 MG, MORNING
     Route: 048
  7. OLANZAPINE [Concomitant]
     Indication: AGGRESSION
     Dosage: 2.5 MG, MORNING
     Route: 048

REACTIONS (3)
  - INCORRECT DRUG ADMINISTRATION DURATION [None]
  - PRODUCT QUALITY ISSUE [None]
  - NO ADVERSE EVENT [None]
